FAERS Safety Report 9508756 (Version 1)
Quarter: 2013Q3

REPORT INFORMATION
  Report Type: Spontaneous
  Country: US (occurrence: US)
  Receive Date: 20130909
  Receipt Date: 20130909
  Transmission Date: 20140515
  Serious: Yes (Other)
  Sender: FDA-Public Use
  Company Number: US-BRISTOL-MYERS SQUIBB COMPANY-19118439

PATIENT
  Age: 3 Decade
  Sex: Male

DRUGS (2)
  1. ABILIFY [Suspect]
  2. TRAZODONE HCL [Concomitant]

REACTIONS (1)
  - Swollen tongue [Recovered/Resolved]
